FAERS Safety Report 15979691 (Version 1)
Quarter: 2019Q1

REPORT INFORMATION
  Report Type: Spontaneous
  Country: US (occurrence: US)
  Receive Date: 20190217
  Receipt Date: 20190217
  Transmission Date: 20190418
  Serious: Yes (Hospitalization, Disabling)
  Sender: FDA-Public Use
  Company Number: None

PATIENT
  Age: 46 Year
  Sex: Male
  Weight: 96.75 kg

DRUGS (5)
  1. ATORVASTATIN  20 MG [Suspect]
     Active Substance: ATORVASTATIN
     Indication: LOW DENSITY LIPOPROTEIN INCREASED
     Dosage: ?          QUANTITY:1 TABLET(S);?
     Route: 048
     Dates: start: 20190202, end: 20190211
  2. MAGNESIUM [Concomitant]
     Active Substance: MAGNESIUM
  3. FISH OIL [Concomitant]
     Active Substance: FISH OIL
  4. VITAMIN B12 [Concomitant]
     Active Substance: CYANOCOBALAMIN
  5. COQ 10 [Concomitant]
     Active Substance: UBIDECARENONE

REACTIONS (9)
  - Tinnitus [None]
  - Dizziness [None]
  - Neck pain [None]
  - Myalgia [None]
  - Vertigo [None]
  - Paraesthesia [None]
  - Musculoskeletal stiffness [None]
  - Headache [None]
  - Clumsiness [None]

NARRATIVE: CASE EVENT DATE: 20190203
